FAERS Safety Report 20341613 (Version 2)
Quarter: 2023Q1

REPORT INFORMATION
  Report Type: Report from Study
  Country: US (occurrence: None)
  Receive Date: 20220117
  Receipt Date: 20230109
  Transmission Date: 20230418
  Serious: Yes (Hospitalization, Other)
  Sender: FDA-Public Use
  Company Number: US-ROCHE-3002916

PATIENT
  Age: 76 Year
  Sex: Male

DRUGS (4)
  1. ATEZOLIZUMAB [Suspect]
     Active Substance: ATEZOLIZUMAB
     Indication: Colon cancer
     Dosage: ON DAY 1 CYCLES 13-25 CYCLE 14 DAYS
     Route: 041
     Dates: start: 20180608
  2. OXALIPLATIN [Suspect]
     Active Substance: OXALIPLATIN
     Indication: Colon cancer
     Dosage: OVER 2 HOURS ON DAY 1
     Route: 042
     Dates: start: 20180608
  3. LEUCOVORIN CALCIUM [Suspect]
     Active Substance: LEUCOVORIN CALCIUM
     Indication: Colon cancer
     Dosage: IV OVER 2 HOURS ON DAY 1
     Route: 042
     Dates: start: 20180608
  4. FLUOROURACIL [Suspect]
     Active Substance: FLUOROURACIL
     Indication: Colon cancer
     Dosage: 400MG/M2 IV (BOLUS) ON DAY 1 FOLLOWED BY 2400MG/M2 IV OVER 46 HOURS DAYS 1-3
     Route: 042
     Dates: start: 20180608

REACTIONS (2)
  - Febrile neutropenia [Recovered/Resolved]
  - Hyperthyroidism [Unknown]

NARRATIVE: CASE EVENT DATE: 20180622
